FAERS Safety Report 18005921 (Version 1)
Quarter: 2020Q3

REPORT INFORMATION
  Report Type: Spontaneous
  Country: US (occurrence: US)
  Receive Date: 20200709
  Receipt Date: 20200709
  Transmission Date: 20201103
  Serious: Yes (Other)
  Sender: FDA-Public Use
  Company Number: None

PATIENT
  Age: 32 Year
  Sex: Male

DRUGS (2)
  1. LEVOFLOXACIN. [Suspect]
     Active Substance: LEVOFLOXACIN
     Indication: SCROTAL INFLAMMATION
     Dosage: ?          QUANTITY:1 TABLET(S);?
     Route: 048
     Dates: start: 20200708, end: 20200709
  2. LIALDA [Concomitant]
     Active Substance: MESALAMINE

REACTIONS (4)
  - Dizziness [None]
  - Cardiac disorder [None]
  - Product complaint [None]
  - Pain [None]

NARRATIVE: CASE EVENT DATE: 20200709
